FAERS Safety Report 10064824 (Version 2)
Quarter: 2014Q2

REPORT INFORMATION
  Report Type: Spontaneous
  Country: US (occurrence: None)
  Receive Date: 20140404
  Receipt Date: 20140619
  Transmission Date: 20141212
  Serious: Yes (Other)
  Sender: FDA-Public Use
  Company Number: 2014-US-003873

PATIENT
  Age: 64 Year
  Sex: Female

DRUGS (11)
  1. XYREM [Suspect]
     Indication: SLEEP DISORDER
     Route: 048
     Dates: start: 200408, end: 2004
  2. XYREM [Suspect]
     Indication: SLEEP DISORDER
     Route: 048
     Dates: start: 200408, end: 2004
  3. XYREM [Suspect]
     Indication: SLEEP DISORDER
     Route: 048
     Dates: start: 200408, end: 2004
  4. CLONIDINE (CLONIDINE HYDROCHLORIDE) [Concomitant]
  5. FUROSEMIDE (FUROSEMIDE) [Concomitant]
  6. PRINIVIL (LISINOPRIL DIHYDRATE) [Concomitant]
  7. CYTOMEL (LIOTHYRONINE SODIUM) [Concomitant]
  8. HYDRALAZINE (HYDRALAZINE HYDROCHLORIDE) [Concomitant]
  9. ALPRAZOLAM (ALPRAZOLAM) [Concomitant]
  10. ZOLPIDEM (ZOLPIDEM TARTRATE) [Concomitant]
  11. VIVELLE-DOT (ESTRADIOL) [Concomitant]

REACTIONS (4)
  - Spinal fracture [None]
  - Fall [None]
  - Off label use [None]
  - Clavicle fracture [None]
